FAERS Safety Report 18935270 (Version 4)
Quarter: 2024Q1

REPORT INFORMATION
  Report Type: Report from Study
  Country: US (occurrence: US)
  Receive Date: 20210224
  Receipt Date: 20240207
  Transmission Date: 20240409
  Serious: No
  Sender: FDA-Public Use
  Company Number: US-HRARD-202000916

PATIENT
  Age: 27 Year
  Sex: Female

DRUGS (4)
  1. LYSODREN [Suspect]
     Active Substance: MITOTANE
     Indication: Adrenocortical carcinoma
     Route: 048
     Dates: start: 20201019, end: 2020
  2. LYSODREN [Suspect]
     Active Substance: MITOTANE
     Indication: Adrenocortical carcinoma
     Route: 048
     Dates: start: 2020
  3. LYSODREN [Suspect]
     Active Substance: MITOTANE
     Indication: Adrenocortical carcinoma
     Dosage: 2000 MG BID
     Route: 048
     Dates: start: 20201020, end: 202301
  4. METOPIRONE [Suspect]
     Active Substance: METYRAPONE
     Indication: Product used for unknown indication

REACTIONS (5)
  - Bone pain [Unknown]
  - Depression [Unknown]
  - Fatigue [Unknown]
  - Diarrhoea [Unknown]
  - Intentional dose omission [Unknown]

NARRATIVE: CASE EVENT DATE: 20200101
